FAERS Safety Report 4417801-6 (Version None)
Quarter: 2004Q3

REPORT INFORMATION
  Report Type: 
  Country: None (occurrence: None)
  Receive Date: 20040803
  Receipt Date: 20040723
  Transmission Date: 20050211
  Serious: Yes (Hospitalization)
  Sender: FDA-Public Use
  Company Number: 2004225422FR

PATIENT
  Age: 65 Year
  Sex: Female
  Weight: 85 kg

DRUGS (4)
  1. XANAX [Suspect]
     Indication: DEMENTIA ALZHEIMER'S TYPE
     Dosage: 0.25 MG, TID, ORAL
     Route: 048
     Dates: end: 20040506
  2. LOXAPINE SUCCINATE [Suspect]
     Indication: DEMENTIA ALZHEIMER'S TYPE
     Dosage: 25 MG, TID, ORAL
     Route: 048
     Dates: start: 20040101, end: 20040506
  3. MELLERIL (THIORIDAZINE HYDROCHLORIDE) [Suspect]
     Indication: DEMENTIA ALZHEIMER'S TYPE
     Dosage: 40 MG, TID, ORAL
     Route: 048
     Dates: end: 20040506
  4. PHENOBARBITAL TAB [Suspect]
     Indication: EPILEPSY
     Dosage: 1000 MG, BID,
     Dates: end: 20040506

REACTIONS (6)
  - DEPRESSED LEVEL OF CONSCIOUSNESS [None]
  - HYPOTHERMIA [None]
  - IATROGENIC INJURY [None]
  - LEUKOPENIA [None]
  - PULMONARY SEPSIS [None]
  - SOMNOLENCE [None]
